FAERS Safety Report 15719872 (Version 2)
Quarter: 2018Q4

REPORT INFORMATION
  Report Type: Spontaneous
  Country: US (occurrence: US)
  Receive Date: 20181213
  Receipt Date: 20181214
  Transmission Date: 20190205
  Serious: Yes (Other)
  Sender: FDA-Public Use
  Company Number: US-PFIZER INC-2018511976

PATIENT
  Age: 68 Year
  Sex: Male

DRUGS (1)
  1. ATORVASTATIN CALCIUM. [Suspect]
     Active Substance: ATORVASTATIN CALCIUM
     Dosage: 10 MG, UNK

REACTIONS (2)
  - Myocardial infarction [Unknown]
  - Pain [Unknown]

NARRATIVE: CASE EVENT DATE: 20181204
